FAERS Safety Report 8331727-7 (Version None)
Quarter: 2012Q2

REPORT INFORMATION
  Report Type: 
  Country: None (occurrence: None)
  Receive Date: 20120502
  Receipt Date: 20120406
  Transmission Date: 20120825
  Serious: No
  Sender: FDA-Public Use
  Company Number: US-ASTRAZENECA-2012SE23023

PATIENT
  Age: 57 Year
  Sex: Female
  Weight: 56.7 kg

DRUGS (2)
  1. ENTOCORT EC [Suspect]
     Indication: INFLAMMATORY BOWEL DISEASE
     Route: 048
  2. ENTOCORT EC [Suspect]
     Indication: COLITIS
     Route: 048

REACTIONS (7)
  - OFF LABEL USE [None]
  - INTENTIONAL DRUG MISUSE [None]
  - ABDOMINAL DISTENSION [None]
  - BACK PAIN [None]
  - FATIGUE [None]
  - MALAISE [None]
  - DIARRHOEA [None]
